FAERS Safety Report 4798180-1 (Version None)
Quarter: 2005Q4

REPORT INFORMATION
  Report Type: 
  Country: None (occurrence: None)
  Receive Date: 20051011
  Receipt Date: 20050926
  Transmission Date: 20060501
  Serious: Yes (Other)
  Sender: FDA-Public Use
  Company Number: 2005066634

PATIENT
  Age: 73 Year
  Sex: Female
  Weight: 50.8029 kg

DRUGS (5)
  1. BEXTRA [Suspect]
     Indication: ARTHRITIS
     Dosage: 20 MG (20 MG, 1 IN 1 D), ORAL
     Route: 048
     Dates: start: 20030101, end: 20050401
  2. FLUOROURACIL [Suspect]
     Indication: COLON CANCER
  3. PRAVACHOL [Concomitant]
  4. CALCIUM (CALCIUM) [Concomitant]
  5. VITAMIN E [Concomitant]

REACTIONS (7)
  - BLISTER [None]
  - DERMATITIS [None]
  - ECZEMA [None]
  - ERYTHEMA [None]
  - FLATULENCE [None]
  - FREQUENT BOWEL MOVEMENTS [None]
  - POST PROCEDURAL COMPLICATION [None]
